FAERS Safety Report 16995712 (Version 2)
Quarter: 2019Q4

REPORT INFORMATION
  Report Type: Spontaneous
  Country: US (occurrence: US)
  Receive Date: 20191105
  Receipt Date: 20191209
  Transmission Date: 20200122
  Serious: Yes (Other)
  Sender: FDA-Public Use
  Company Number: US-BEH-2019108788

PATIENT
  Age: 42 Year
  Sex: Female
  Weight: 69.16 kg

DRUGS (1)
  1. HIZENTRA [Suspect]
     Active Substance: HUMAN IMMUNOGLOBULIN G
     Indication: IMMUNODEFICIENCY COMMON VARIABLE
     Dosage: 10 GRAM, QW
     Route: 058
     Dates: start: 201903

REACTIONS (8)
  - Essential hypertension [Unknown]
  - Headache [Unknown]
  - Heart rate increased [Unknown]
  - Dizziness [Unknown]
  - Tremor [Unknown]
  - Presyncope [Unknown]
  - Nausea [Unknown]
  - Feeling cold [Unknown]

NARRATIVE: CASE EVENT DATE: 20191024
